FAERS Safety Report 24304195 (Version 1)
Quarter: 2024Q3

REPORT INFORMATION
  Report Type: Spontaneous
  Country: US (occurrence: US)
  Receive Date: 20240910
  Receipt Date: 20240910
  Transmission Date: 20241017
  Serious: No
  Sender: NOVARTIS
  Company Number: US-002147023-NVSC2024US181230

PATIENT
  Sex: Female
  Weight: 58 kg

DRUGS (1)
  1. SCEMBLIX [Suspect]
     Active Substance: ASCIMINIB HYDROCHLORIDE
     Indication: Leukaemia
     Dosage: 40 MG, BID
     Route: 048

REACTIONS (1)
  - Intervertebral disc disorder [Recovering/Resolving]
